FAERS Safety Report 24282831 (Version 1)
Quarter: 2024Q3

REPORT INFORMATION
  Report Type: Spontaneous
  Country: US (occurrence: None)
  Receive Date: 20240903
  Receipt Date: 20240903
  Transmission Date: 20241016
  Serious: No
  Sender: Public
  Company Number: None

PATIENT
  Age: 13 Year
  Sex: Male
  Weight: 56.7 kg

DRUGS (1)
  1. CANNABIS SATIVA SUBSP. INDICA TOP\DEVICE [Suspect]
     Active Substance: CANNABIS SATIVA SUBSP. INDICA TOP\DEVICE

REACTIONS (1)
  - Seizure [None]
